FAERS Safety Report 7658621-9 (Version None)
Quarter: 2011Q3

REPORT INFORMATION
  Report Type: 
  Country: None (occurrence: None)
  Receive Date: 20110805
  Receipt Date: 20110725
  Transmission Date: 20111222
  Serious: Yes (Other)
  Sender: FDA-Public Use
  Company Number: CN-BRISTOL-MYERS SQUIBB COMPANY-15946759

PATIENT
  Age: 66 Year
  Sex: Male

DRUGS (1)
  1. CETUXIMAB [Suspect]
     Indication: HYPOPHARYNGEAL CANCER
     Dosage: 1DF:400MG/M SUP(2) FOR 120MIN,THEN 250MG/M SUP FOR 60 MIN
     Route: 042

REACTIONS (1)
  - HAEMATOTOXICITY [None]
